FAERS Safety Report 4604658-3 (Version None)
Quarter: 2005Q2

REPORT INFORMATION
  Report Type: 
  Country: None (occurrence: None)
  Receive Date: 20050223
  Receipt Date: 20050119
  Transmission Date: 20051028
  Serious: No
  Sender: FDA-Public Use
  Company Number: PHEH2004US13202

PATIENT
  Age: 78 Year
  Sex: Male

DRUGS (4)
  1. ZELNORM [Suspect]
     Indication: CONSTIPATION
     Dosage: 6 MG, ONCE/SINGLE, ORAL
     Route: 048
     Dates: start: 20041203, end: 20041203
  2. WARFARIN SODIUM [Concomitant]
  3. ACCUPRIL [Concomitant]
  4. XANAX [Concomitant]

REACTIONS (2)
  - DIARRHOEA [None]
  - INTERNATIONAL NORMALISED RATIO DECREASED [None]
